FAERS Safety Report 18043610 (Version 8)
Quarter: 2022Q1

REPORT INFORMATION
  Report Type: Report from Study
  Country: GB (occurrence: None)
  Receive Date: 20200720
  Receipt Date: 20220121
  Transmission Date: 20220423
  Serious: Yes (Life-Threatening, Hospitalization, Other)
  Sender: FDA-Public Use
  Company Number: GB-ROCHE-2619703

PATIENT
  Age: 71 Year
  Sex: Male
  Weight: 82.2 kg

DRUGS (34)
  1. GLOFITAMAB [Suspect]
     Active Substance: GLOFITAMAB
     Indication: B-cell lymphoma
     Dosage: DATE OF LAST STUDY DRUG ADMIN PRIOR AE IS 30 MG: 13/MAY/2020 AT 02:50 PM WHICH ENDED AT 4:50 PM
     Route: 042
     Dates: start: 20200401
  2. ATEZOLIZUMAB [Suspect]
     Active Substance: ATEZOLIZUMAB
     Indication: B-cell lymphoma
     Dosage: DATE LAST STUDY DRUG ADMIN PRIOR AE IS 1200 MG: 13/MAY/2020 AT 1:15 PM WHICH ENDED AT 1:45 PM
     Route: 041
     Dates: start: 20200422
  3. OBINUTUZUMAB [Suspect]
     Active Substance: OBINUTUZUMAB
     Indication: B-cell lymphoma
     Dosage: AT 1:55 PM ON 26/MAR/2020, MOST RECENT DOSE OF STUDY DRUG PRIOR TO AE WHICH ENDED AT 6:40 PM.
     Route: 042
     Dates: start: 20200326
  4. FLUCONAZOLE [Concomitant]
     Active Substance: FLUCONAZOLE
     Indication: Oral pain
     Dates: start: 20200513
  5. FLUCONAZOLE [Concomitant]
     Active Substance: FLUCONAZOLE
     Indication: Neutropenic sepsis
     Dates: start: 20200525, end: 20200528
  6. FLUCONAZOLE [Concomitant]
     Active Substance: FLUCONAZOLE
     Indication: Oral candidiasis
  7. CHLORHEXIDINE GLUCONATE [Concomitant]
     Active Substance: CHLORHEXIDINE GLUCONATE
     Indication: Oral pain
     Dosage: MOUTH WASH
     Dates: start: 20200513
  8. CHLORHEXIDINE GLUCONATE [Concomitant]
     Active Substance: CHLORHEXIDINE GLUCONATE
     Indication: Oral candidiasis
  9. PIPERACILLIN SODIUM\TAZOBACTAM SODIUM [Concomitant]
     Active Substance: PIPERACILLIN SODIUM\TAZOBACTAM SODIUM
     Indication: Neutropenic sepsis
     Dosage: YES
     Dates: start: 20200524, end: 20200528
  10. TEICOPLANIN [Concomitant]
     Active Substance: TEICOPLANIN
     Indication: Neutropenic sepsis
     Dates: start: 20200526, end: 20200528
  11. MEROPENEM [Concomitant]
     Active Substance: MEROPENEM
     Indication: Neutropenic sepsis
     Dates: start: 20200528, end: 20200531
  12. METHYLPREDNISOLONE [Concomitant]
     Active Substance: METHYLPREDNISOLONE
     Route: 042
     Dates: start: 20200513, end: 20200513
  13. ACETAMINOPHEN [Concomitant]
     Active Substance: ACETAMINOPHEN
     Indication: Back pain
     Route: 048
     Dates: start: 20200513, end: 20200513
  14. ACETAMINOPHEN [Concomitant]
     Active Substance: ACETAMINOPHEN
     Indication: Neck pain
  15. ACYCLOVIR [Concomitant]
     Active Substance: ACYCLOVIR
     Dates: start: 201510, end: 20200703
  16. OMEPRAZOLE [Concomitant]
     Active Substance: OMEPRAZOLE
     Dates: start: 201510
  17. CARBOCYSTEINE [Concomitant]
     Active Substance: CARBOCYSTEINE
     Indication: Bronchiectasis
     Dates: start: 201510
  18. AZITHROMYCIN [Concomitant]
     Active Substance: AZITHROMYCIN
     Dates: start: 201510
  19. SIMVASTATIN [Concomitant]
     Active Substance: SIMVASTATIN
     Indication: Blood cholesterol increased
     Dates: start: 200710
  20. AMITRIPTYLINE [Concomitant]
     Active Substance: AMITRIPTYLINE
     Indication: Back pain
     Dates: start: 200410, end: 20200705
  21. AMITRIPTYLINE [Concomitant]
     Active Substance: AMITRIPTYLINE
     Indication: Neck pain
  22. ALLOPURINOL [Concomitant]
     Active Substance: ALLOPURINOL
     Dates: start: 20200326
  23. FILGRASTIM [Concomitant]
     Active Substance: FILGRASTIM
     Indication: Neutropenic sepsis
     Dates: start: 20200524, end: 20200527
  24. NOREPINEPHRINE [Concomitant]
     Active Substance: NOREPINEPHRINE
     Indication: Neutropenic sepsis
     Dates: start: 20200524, end: 20200525
  25. NOREPINEPHRINE [Concomitant]
     Active Substance: NOREPINEPHRINE
     Dates: start: 20200707, end: 20200707
  26. VASOPRESSIN [Concomitant]
     Active Substance: VASOPRESSIN
     Indication: Neutropenic sepsis
     Dates: start: 20200524, end: 20200525
  27. VASOPRESSIN [Concomitant]
     Active Substance: VASOPRESSIN
     Dates: start: 20200707, end: 20200707
  28. CASPOFUNGIN [Concomitant]
     Active Substance: CASPOFUNGIN
     Indication: Neutropenic sepsis
     Dates: start: 20200527
  29. PREDNISOLONE [Concomitant]
     Active Substance: PREDNISOLONE
     Indication: Rash
     Dates: start: 20200529
  30. PREDNISOLONE [Concomitant]
     Active Substance: PREDNISOLONE
     Dates: start: 20200609, end: 20200613
  31. PREDNISOLONE [Concomitant]
     Active Substance: PREDNISOLONE
     Dates: start: 202002, end: 20200707
  32. DAPTOMYCIN [Concomitant]
     Active Substance: DAPTOMYCIN
     Indication: Sepsis
     Dates: start: 20200626, end: 20200702
  33. CIPROFLOXACIN [Concomitant]
     Active Substance: CIPROFLOXACIN
     Indication: Sepsis
     Dates: start: 20200626, end: 20200702
  34. GENTAMICIN [Concomitant]
     Active Substance: GENTAMICIN
     Indication: Sepsis
     Dates: start: 20200626, end: 20200626

REACTIONS (3)
  - Stevens-Johnson syndrome [Not Recovered/Not Resolved]
  - Toxic epidermal necrolysis [Not Recovered/Not Resolved]
  - Atrial fibrillation [Recovered/Resolved]

NARRATIVE: CASE EVENT DATE: 20200526
